FAERS Safety Report 6560766-1 (Version None)
Quarter: 2010Q1

REPORT INFORMATION
  Report Type: 
  Country: None (occurrence: None)
  Receive Date: 20100129
  Receipt Date: 20090928
  Transmission Date: 20100710
  Serious: No
  Sender: FDA-Public Use
  Company Number: US-ABBOTT-09P-163-0599943-00

PATIENT
  Sex: Male
  Weight: 108.96 kg

DRUGS (5)
  1. HUMIRA [Suspect]
     Indication: PSORIASIS
     Dates: start: 20090701
  2. HUMIRA [Suspect]
     Dosage: FOR 2 DOSES
  3. HUMIRA [Suspect]
     Dates: start: 20090922
  4. HUMIRA [Suspect]
  5. TACLONEX [Concomitant]
     Indication: PSORIASIS
     Route: 061

REACTIONS (4)
  - HEADACHE [None]
  - OROPHARYNGEAL PAIN [None]
  - PHARYNGITIS STREPTOCOCCAL [None]
  - PYREXIA [None]
